FAERS Safety Report 11492783 (Version 1)
Quarter: 2015Q3

REPORT INFORMATION
  Report Type: Spontaneous
  Country: US (occurrence: None)
  Receive Date: 20150910
  Receipt Date: 20150910
  Transmission Date: 20151125
  Serious: No
  Sender: FDA-Public Use
  Company Number: None

PATIENT
  Sex: Female
  Weight: 129.28 kg

DRUGS (1)
  1. LEVOTHYROXINE. [Suspect]
     Active Substance: LEVOTHYROXINE
     Indication: THYROID CANCER
     Dosage: SYNTHROID 300MCG BRAND NEC. DAILY PO
     Route: 048
     Dates: end: 2015

REACTIONS (2)
  - Product substitution issue [None]
  - Gastrointestinal disorder [None]
